FAERS Safety Report 6279531-8 (Version None)
Quarter: 2009Q3

REPORT INFORMATION
  Report Type: 
  Country: None (occurrence: None)
  Receive Date: 20090723
  Receipt Date: 20090713
  Transmission Date: 20100115
  Serious: Yes (Other)
  Sender: FDA-Public Use
  Company Number: US-JNJFOC-20090706119

PATIENT
  Age: 61 Year
  Sex: Male
  Weight: 95.26 kg

DRUGS (3)
  1. DOXIL [Suspect]
     Indication: MULTIPLE MYELOMA
     Dosage: 1ST DOSE
     Route: 042
  2. VELCADE [Suspect]
     Indication: MULTIPLE MYELOMA
     Dosage: 1ST DOSE
     Route: 042
  3. OMEPRAZOLE [Concomitant]
     Route: 065

REACTIONS (3)
  - ABNORMAL SENSATION IN EYE [None]
  - HEADACHE [None]
  - NEUROPATHY PERIPHERAL [None]
